FAERS Safety Report 7302223-0 (Version None)
Quarter: 2011Q1

REPORT INFORMATION
  Report Type: 
  Country: None (occurrence: None)
  Receive Date: 20110218
  Receipt Date: 20110210
  Transmission Date: 20110831
  Serious: Yes (Other)
  Sender: FDA-Public Use
  Company Number: PHHY2011PL10757

PATIENT
  Sex: Male

DRUGS (8)
  1. FORADIL [Suspect]
     Dosage: TWO TIMES A DAY
  2. POTASSIUM [Concomitant]
  3. SALMETEROL [Concomitant]
  4. SIRDALUD [Concomitant]
  5. MAGNESIUM [Concomitant]
  6. KETONAL [Concomitant]
  7. TIOTROPIUM [Concomitant]
     Dosage: ONCE A DAY
  8. FLUTICASONE PROPIONATE [Concomitant]
     Dosage: TWO TIMES A DAY

REACTIONS (2)
  - MUSCLE SPASMS [None]
  - SPINAL OSTEOARTHRITIS [None]
